FAERS Safety Report 9807798 (Version 2)
Quarter: 2014Q2

REPORT INFORMATION
  Report Type: Report from Study
  Country: US (occurrence: US)
  Receive Date: 20140110
  Receipt Date: 20140401
  Transmission Date: 20141212
  Serious: Yes (Hospitalization)
  Sender: FDA-Public Use
  Company Number: US-PURDUE-USA-2014-0110065

PATIENT
  Age: 58 Year
  Sex: Male

DRUGS (1)
  1. OXY CR TAB [Suspect]
     Indication: PAIN IN EXTREMITY
     Dosage: 80 MG, Q8H
     Route: 048
     Dates: start: 20131030

REACTIONS (1)
  - Localised infection [Not Recovered/Not Resolved]
